FAERS Safety Report 11209469 (Version 4)
Quarter: 2015Q3

REPORT INFORMATION
  Report Type: Spontaneous
  Country: GB (occurrence: GB)
  Receive Date: 20150622
  Receipt Date: 20150721
  Transmission Date: 20151125
  Serious: Yes (Death, Other)
  Sender: FDA-Public Use
  Company Number: GB-ABBVIE-13P-167-1059767-00

PATIENT
  Age: 82 Year
  Sex: Male

DRUGS (2)
  1. PROSTAP 3 DCS 11.25MG [Suspect]
     Active Substance: LEUPROLIDE ACETATE
     Indication: PROSTATE CANCER
     Dosage: 11.25MG, UNK
     Route: 065
     Dates: start: 20120312
  2. PROSTAP SR DCS 3.75MG [Suspect]
     Active Substance: LEUPROLIDE ACETATE
     Indication: PROSTATE CANCER
     Dosage: 3.75 MG, UNK
     Route: 058
     Dates: start: 20121207

REACTIONS (6)
  - Wheezing [Unknown]
  - Upper respiratory tract infection [Unknown]
  - Pulmonary oedema [Unknown]
  - Abdominal discomfort [Unknown]
  - Dyspnoea [Fatal]
  - Myocardial infarction [Fatal]

NARRATIVE: CASE EVENT DATE: 201212
